FAERS Safety Report 9244910 (Version 1)
Quarter: 2013Q2

REPORT INFORMATION
  Report Type: Spontaneous
  Country: None (occurrence: None)
  Receive Date: 20130422
  Receipt Date: 20130422
  Transmission Date: 20140414
  Serious: Yes (Disabling, Other)
  Sender: FDA-Public Use
  Company Number: PHHY2013ME010972

PATIENT
  Sex: Female
  Weight: 99 kg

DRUGS (1)
  1. TASIGNA [Suspect]
     Indication: CHRONIC MYELOID LEUKAEMIA
     Dosage: 800 MG, QD
     Route: 048
     Dates: start: 20120424

REACTIONS (3)
  - Tinnitus [Not Recovered/Not Resolved]
  - Deafness [Recovered/Resolved]
  - Quality of life decreased [Unknown]
